FAERS Safety Report 5302435-1 (Version None)
Quarter: 2007Q2

REPORT INFORMATION
  Report Type: 
  Country: None (occurrence: None)
  Receive Date: 20070413
  Receipt Date: 20070404
  Transmission Date: 20071010
  Serious: Yes (Other)
  Sender: FDA-Public Use
  Company Number: GXKR2007GB03193

PATIENT
  Age: 58 Year
  Sex: Male
  Weight: 112 kg

DRUGS (7)
  1. SIMVASTATIN [Suspect]
     Dosage: 10 MG, QD, ORAL
     Route: 048
     Dates: start: 20070125, end: 20070127
  2. AMLODIPINE [Concomitant]
  3. GLIPIZIDE [Concomitant]
  4. METFORMIN HCL [Concomitant]
  5. MOXONIDINE (MOXONIDINE) [Concomitant]
  6. ROSIGLITAZONE [Concomitant]
  7. VALSARTAN [Concomitant]

REACTIONS (2)
  - NIGHTMARE [None]
  - REFUSAL OF TREATMENT BY PATIENT [None]
